FAERS Safety Report 6412526-X (Version None)
Quarter: 2009Q4

REPORT INFORMATION
  Report Type: 
  Country: None (occurrence: None)
  Receive Date: 20091023
  Receipt Date: 20090731
  Transmission Date: 20100525
  Serious: Yes (Other)
  Sender: FDA-Public Use
  Company Number: US-BRISTOL-MYERS SQUIBB COMPANY-14683536

PATIENT
  Age: 19 Year
  Sex: Female
  Weight: 52 kg

DRUGS (1)
  1. KENALOG-40 [Suspect]
     Indication: INFLAMMATION
     Route: 031
     Dates: start: 20090120

REACTIONS (1)
  - GLAUCOMA [None]
